FAERS Safety Report 25124487 (Version 1)
Quarter: 2025Q1

REPORT INFORMATION
  Report Type: Spontaneous
  Country: US (occurrence: US)
  Receive Date: 20250326
  Receipt Date: 20250326
  Transmission Date: 20250409
  Serious: No
  Sender: ITALFARMACO SPA
  Company Number: US-ITALFARMACO SPA-2173706

PATIENT
  Age: 10 Year
  Sex: Male
  Weight: 36.8 kg

DRUGS (3)
  1. DUVYZAT [Suspect]
     Active Substance: GIVINOSTAT
     Indication: Duchenne muscular dystrophy
     Dates: start: 20241003
  2. AMONDYS 45 [Concomitant]
     Active Substance: CASIMERSEN
  3. AGAMREE [Concomitant]
     Active Substance: VAMOROLONE

REACTIONS (1)
  - Hyperlipidaemia [Unknown]
